FAERS Safety Report 24756386 (Version 2)
Quarter: 2025Q4

REPORT INFORMATION
  Report Type: Spontaneous
  Country: US (occurrence: US)
  Receive Date: 20241220
  Receipt Date: 20251008
  Transmission Date: 20260119
  Serious: No
  Sender: SANOFI AVENTIS
  Company Number: US-SA-2024SA374408

PATIENT
  Age: 58 Year
  Sex: Female

DRUGS (1)
  1. DUPIXENT [Suspect]
     Active Substance: DUPILUMAB
     Indication: Asthma
     Dosage: 300 MG, QOW
     Route: 058

REACTIONS (8)
  - Pyrexia [Unknown]
  - Infection [Unknown]
  - Gastrointestinal inflammation [Unknown]
  - Oral pain [Unknown]
  - Pharyngitis [Unknown]
  - Eye pruritus [Unknown]
  - Arthralgia [Unknown]
  - Rash [Unknown]
